FAERS Safety Report 7933321 (Version 5)
Quarter: 2013Q1

REPORT INFORMATION
  Report Type: Spontaneous
  Country: US (occurrence: US)
  Receive Date: 20110506
  Receipt Date: 20130109
  Transmission Date: 20140127
  Serious: Yes (Hospitalization, Other)
  Sender: FDA-Public Use
  Company Number: US-BAYER-2011-038349

PATIENT
  Age: 32 Year
  Sex: Female
  Weight: 154 kg

DRUGS (20)
  1. YASMIN [Suspect]
     Indication: ORAL CONTRACEPTION
     Dosage: UNK
     Dates: start: 2003, end: 2004
  2. YASMIN [Suspect]
     Indication: ACNE
  3. YASMIN [Suspect]
     Indication: PREMENSTRUAL SYNDROME
  4. HUMIBID DM [Concomitant]
     Route: 048
  5. ZITHROMAX [Concomitant]
     Route: 048
  6. TUSSIONEX [Concomitant]
     Route: 048
  7. AMBIEN [Concomitant]
     Dosage: 10 MG, UNK
     Route: 048
  8. HYDROCODONE W/APAP [Concomitant]
     Route: 048
  9. PROMETHAZINE [Concomitant]
     Route: 048
  10. LEVAQUIN [Concomitant]
  11. LORTAB [Concomitant]
  12. COLESTID [Concomitant]
  13. PREVACID [Concomitant]
  14. BEXTRA [Concomitant]
  15. KEFLEX [Concomitant]
  16. ATIVAN [Concomitant]
     Dosage: 1 MG, Q4HR AS NEEDED
  17. LORAZEPAM [Concomitant]
     Dosage: 1 MG, UNK
     Route: 048
     Dates: start: 20040413
  18. CIPRO XR [Concomitant]
     Indication: URINARY TRACT INFECTION
  19. BIAXIN XL [Concomitant]
  20. Z-PAK [Concomitant]

REACTIONS (10)
  - Gallbladder disorder [None]
  - Deep vein thrombosis [Recovered/Resolved]
  - Thrombosis [None]
  - Splenic infarction [None]
  - Injury [None]
  - Fear [None]
  - Anxiety [None]
  - Anhedonia [None]
  - Quality of life decreased [None]
  - Pain [None]
